FAERS Safety Report 5551279-4 (Version None)
Quarter: 2007Q4

REPORT INFORMATION
  Report Type: 
  Country: None (occurrence: None)
  Receive Date: 20071212
  Receipt Date: 20071210
  Transmission Date: 20080405
  Serious: Yes (Other)
  Sender: FDA-Public Use
  Company Number: GB-WYE-G00751907

PATIENT
  Sex: Female

DRUGS (1)
  1. EFFEXOR XR [Suspect]
     Dosage: 150MG DAILY
     Route: 048
     Dates: start: 20070806

REACTIONS (3)
  - AMNESIA [None]
  - TREMOR [None]
  - VISUAL ACUITY REDUCED [None]
